FAERS Safety Report 5788286-2 (Version None)
Quarter: 2008Q2

REPORT INFORMATION
  Report Type: 
  Country: None (occurrence: None)
  Receive Date: 20080625
  Receipt Date: 20080619
  Transmission Date: 20081010
  Serious: Yes (Death)
  Sender: FDA-Public Use
  Company Number: JP-MERCK-0806USA07733

PATIENT
  Age: 70 Year
  Sex: Female

DRUGS (2)
  1. HYZAAR [Suspect]
     Indication: HYPERTENSION
     Route: 048
     Dates: start: 20080601, end: 20080601
  2. AMLODIPINE BESYLATE [Concomitant]
     Route: 048
     Dates: end: 20080608

REACTIONS (1)
  - MYOCARDIAL INFARCTION [None]
